FAERS Safety Report 4486581-0 (Version None)
Quarter: 2004Q4

REPORT INFORMATION
  Report Type: 
  Country: None (occurrence: None)
  Receive Date: 20041026
  Receipt Date: 20041026
  Transmission Date: 20050328
  Serious: Yes (Other)
  Sender: FDA-Public Use
  Company Number: None

PATIENT
  Age: 66 Year
  Sex: Male
  Weight: 80 kg

DRUGS (13)
  1. VANCOMYCIN [Suspect]
     Indication: STAPHYLOCOCCAL INFECTION
     Dosage: 1 GM Q 12 HOURS
     Dates: start: 20040820, end: 20040902
  2. VANCOMYCIN [Suspect]
     Indication: WOUND INFECTION
     Dosage: 1 GM Q 12 HOURS
     Dates: start: 20040820, end: 20040902
  3. VIOXX [Concomitant]
  4. OXYCODONE [Concomitant]
  5. PROZAC [Concomitant]
  6. RENOVA CRM [Concomitant]
  7. PATANOL [Concomitant]
  8. FML-LIQUIFILM [Concomitant]
  9. FISH OIL [Concomitant]
  10. M.V.I. [Concomitant]
  11. GLUCOSAMINE WITH CHONDROITIN [Concomitant]
  12. GINGKO BILOBA [Concomitant]
  13. PREMARIN [Concomitant]

REACTIONS (2)
  - HEARING IMPAIRED [None]
  - TINNITUS [None]
